FAERS Safety Report 7017787-4 (Version None)
Quarter: 2010Q3

REPORT INFORMATION
  Report Type: 
  Country: None (occurrence: None)
  Receive Date: 20100928
  Receipt Date: 20100915
  Transmission Date: 20110219
  Serious: Yes (Other)
  Sender: FDA-Public Use
  Company Number: US-ELI_LILLY_AND_COMPANY-US201007005807

PATIENT
  Sex: Female

DRUGS (4)
  1. FORTEO [Suspect]
     Indication: OSTEOPOROSIS
     Dosage: 20 UG, DAILY (1/D)
  2. LOTREL [Concomitant]
  3. LIPITOR [Concomitant]
     Dosage: 10 MG, UNK
  4. LEXAPRO [Concomitant]
     Dosage: 10 MG, UNK

REACTIONS (2)
  - LIP DISORDER [None]
  - METASTATIC SQUAMOUS CELL CARCINOMA [None]
